FAERS Safety Report 7104703-X (Version None)
Quarter: 2010Q4

REPORT INFORMATION
  Report Type: 
  Country: None (occurrence: None)
  Receive Date: 20101116
  Receipt Date: 20100707
  Transmission Date: 20110411
  Serious: Yes (Other)
  Sender: FDA-Public Use
  Company Number: GB-RANBAXY-2010RR-33423

PATIENT
  Age: 79 Year
  Sex: Male
  Weight: 79 kg

DRUGS (8)
  1. GABAPENTIN [Suspect]
     Indication: MULTIPLE MYELOMA
     Dosage: 100 MG, QD
     Route: 048
     Dates: start: 20100224
  2. GABAPENTIN [Suspect]
     Indication: PAIN
     Dosage: 300 MG, QD
     Route: 048
     Dates: end: 20100307
  3. ATENOLOL [Concomitant]
     Dosage: 50 MG, QD
  4. FENTANYL [Concomitant]
     Dosage: 500 UG, UNK
  5. FINASTERIDE [Concomitant]
     Dosage: 5 MG, QD
  6. LISINOPRIL [Concomitant]
     Dosage: 10 MG, QD
  7. OMEPRAZOLE [Concomitant]
     Dosage: UNK
  8. PREGABALIN [Concomitant]
     Dosage: UNK

REACTIONS (2)
  - LEUKOPENIA [None]
  - THROMBOCYTOPENIA [None]
